FAERS Safety Report 5708046-8 (Version None)
Quarter: 2008Q2

REPORT INFORMATION
  Report Type: 
  Country: None (occurrence: None)
  Receive Date: 20080417
  Receipt Date: 20080402
  Transmission Date: 20081010
  Serious: Yes (Hospitalization)
  Sender: FDA-Public Use
  Company Number: JP-GENENTECH-252874

PATIENT
  Sex: Female

DRUGS (4)
  1. BEVACIZUMAB [Suspect]
     Indication: RECTAL CANCER
     Dosage: 5 MG/KG, QD
     Route: 042
     Dates: start: 20070911
  2. OXALIPLATIN [Suspect]
     Indication: RECTAL CANCER
     Dosage: 85 MG/M2, QD
     Route: 042
     Dates: start: 20070911
  3. FLUOROURACIL [Suspect]
     Indication: RECTAL CANCER
     Dosage: 400 MG/M2, QD
     Route: 042
     Dates: start: 20070105
  4. ISOVORIN [Suspect]
     Indication: RECTAL CANCER
     Dosage: 200 MG, QD
     Route: 042
     Dates: start: 20070911

REACTIONS (2)
  - HAEMATOTOXICITY [None]
  - TUMOUR HAEMORRHAGE [None]
